FAERS Safety Report 12981693 (Version 4)
Quarter: 2017Q1

REPORT INFORMATION
  Report Type: Spontaneous
  Country: AU (occurrence: AU)
  Receive Date: 20161129
  Receipt Date: 20170329
  Transmission Date: 20170428
  Serious: Yes (Hospitalization, Other)
  Sender: FDA-Public Use
  Company Number: AU-APOTEX-2016AP015004

PATIENT
  Age: 70 Year
  Sex: Male

DRUGS (9)
  1. APO-VENLAFXAINE XR [Suspect]
     Active Substance: VENLAFAXINE HYDROCHLORIDE
     Indication: PRODUCT USED FOR UNKNOWN INDICATION
     Dosage: 300 MG, UNK
     Route: 065
  2. CLOZARIL [Suspect]
     Active Substance: CLOZAPINE
     Indication: SCHIZOPHRENIA
     Route: 065
  3. COMTAN [Suspect]
     Active Substance: ENTACAPONE
     Indication: PRODUCT USED FOR UNKNOWN INDICATION
     Dosage: 200 MG, BID
     Route: 065
  4. LEVODOPA/CARBIDOPA [Suspect]
     Active Substance: CARBIDOPA\LEVODOPA
     Indication: PRODUCT USED FOR UNKNOWN INDICATION
     Dosage: 150/37.5 MG, QID
     Route: 065
  5. GENRX METOPROLOL [Suspect]
     Active Substance: METOPROLOL TARTRATE
     Indication: PRODUCT USED FOR UNKNOWN INDICATION
     Dosage: 12.5 MG, BID
     Route: 065
  6. APO-OLANZAPINE [Suspect]
     Active Substance: OLANZAPINE
     Indication: PRODUCT USED FOR UNKNOWN INDICATION
     Dosage: 15 MG, IN 2 DIVIDED DOSE
     Route: 065
  7. APO-MIRTAZAPINE [Suspect]
     Active Substance: MIRTAZAPINE
     Indication: PRODUCT USED FOR UNKNOWN INDICATION
     Dosage: 15 MG, UNK
     Route: 065
  8. DIGOXIN. [Suspect]
     Active Substance: DIGOXIN
     Indication: PRODUCT USED FOR UNKNOWN INDICATION
     Dosage: 125 ?G, UNK
     Route: 065
  9. ROTIGOTINE [Suspect]
     Active Substance: ROTIGOTINE
     Indication: PRODUCT USED FOR UNKNOWN INDICATION
     Dosage: 2 MG, UNK
     Route: 065

REACTIONS (19)
  - Mitral valve sclerosis [Unknown]
  - Blood lactate dehydrogenase increased [Recovered/Resolved]
  - Device battery issue [Unknown]
  - Tricuspid valve sclerosis [Unknown]
  - Ejection fraction decreased [Unknown]
  - Lymphocyte count decreased [Not Recovered/Not Resolved]
  - Delusion [Unknown]
  - Neutrophil count increased [Recovered/Resolved]
  - Drug effect incomplete [Unknown]
  - Atrial fibrillation [Unknown]
  - Psychiatric decompensation [Unknown]
  - Hallucination, visual [Unknown]
  - Dilatation atrial [Unknown]
  - Systolic dysfunction [Unknown]
  - Protein total decreased [Not Recovered/Not Resolved]
  - Coronary artery disease [Unknown]
  - Ventricular hypokinesia [Unknown]
  - Blood chloride increased [Recovered/Resolved]
  - Myocardial infarction [Unknown]

NARRATIVE: CASE EVENT DATE: 20160908
